FAERS Safety Report 7568657-4 (Version None)
Quarter: 2011Q2

REPORT INFORMATION
  Report Type: 
  Country: None (occurrence: None)
  Receive Date: 20110623
  Receipt Date: 20110614
  Transmission Date: 20111010
  Serious: Yes (Other)
  Sender: FDA-Public Use
  Company Number: US-JNJFOC-20110607545

PATIENT
  Sex: Male
  Weight: 111.13 kg

DRUGS (7)
  1. DURAGESIC-100 [Suspect]
     Indication: PAIN
     Dosage: 100 UG/HR/TWO 50 UG/HR PATCHES EVERY 48 HOURS
     Route: 062
     Dates: start: 20020101
  2. OXYCODONE HCL [Concomitant]
     Indication: PAIN
     Dosage: 50 MG/ UPTO 2 PER DAY
     Route: 048
     Dates: start: 20020101
  3. CARDURA [Concomitant]
     Indication: CARDIAC DISORDER
     Route: 048
  4. BIOCLUSIVE DRESSINGS [Suspect]
     Indication: PRODUCT USED FOR UNKNOWN INDICATION
     Route: 065
  5. DURAGESIC-100 [Suspect]
     Dosage: 100 UG/HR/TWO 50 UG/HR PATCHES EVERY 48 HOURS
     Route: 062
  6. UNKNOWN MEDICATION [Concomitant]
     Indication: PAIN
     Dosage: 10/325 MG TABLETS/UPTO 6 PER DAY/AS NEEDED
     Route: 048
     Dates: start: 20020101
  7. LISINOPRIL [Concomitant]
     Indication: CARDIAC DISORDER
     Route: 048

REACTIONS (10)
  - PRODUCT ADHESION ISSUE [None]
  - WRONG TECHNIQUE IN DRUG USAGE PROCESS [None]
  - DISCOMFORT [None]
  - PRODUCT QUALITY ISSUE [None]
  - WITHDRAWAL SYNDROME [None]
  - HYPERAESTHESIA [None]
  - DEPENDENCE [None]
  - FEELING ABNORMAL [None]
  - DERMATITIS CONTACT [None]
  - INAPPROPRIATE SCHEDULE OF DRUG ADMINISTRATION [None]
